FAERS Safety Report 7372887-4 (Version None)
Quarter: 2011Q1

REPORT INFORMATION
  Report Type: 
  Country: None (occurrence: None)
  Receive Date: 20110324
  Receipt Date: 20110321
  Transmission Date: 20110831
  Serious: Yes (Other)
  Sender: FDA-Public Use
  Company Number: GB-PFIZER INC-2011062455

PATIENT
  Age: 61 Year
  Sex: Male
  Weight: 72.5 kg

DRUGS (2)
  1. CHAMPIX [Suspect]
     Indication: SMOKING CESSATION THERAPY
     Dosage: UNK
     Route: 048
     Dates: start: 20110304, end: 20110305
  2. PARACETAMOL [Concomitant]
     Dosage: 500 MG, UNK
     Route: 048

REACTIONS (4)
  - OEDEMA PERIPHERAL [None]
  - PHARYNGEAL OEDEMA [None]
  - JOINT SWELLING [None]
  - DIZZINESS [None]
